FAERS Safety Report 17718433 (Version 1)
Quarter: 2020Q2

REPORT INFORMATION
  Report Type: Spontaneous
  Country: TR (occurrence: TR)
  Receive Date: 20200428
  Receipt Date: 20200428
  Transmission Date: 20200714
  Serious: Yes (Hospitalization)
  Sender: FDA-Public Use
  Company Number: TR-TEVA-2020-TR-1227912

PATIENT
  Age: 65 Year
  Sex: Female

DRUGS (13)
  1. VINORELBINE [Suspect]
     Active Substance: VINORELBINE TARTRATE
     Indication: MALIGNANT URINARY TRACT NEOPLASM
  2. DOCETAXEL. [Suspect]
     Active Substance: DOCETAXEL
     Indication: RENAL CANCER
  3. GEMCITABINE. [Suspect]
     Active Substance: GEMCITABINE
     Indication: TRANSITIONAL CELL CARCINOMA
     Route: 065
  4. GEMCITABINE. [Suspect]
     Active Substance: GEMCITABINE
     Indication: MALIGNANT URINARY TRACT NEOPLASM
  5. CARBOPLATIN. [Suspect]
     Active Substance: CARBOPLATIN
     Indication: MALIGNANT URINARY TRACT NEOPLASM
  6. DOCETAXEL. [Suspect]
     Active Substance: DOCETAXEL
     Indication: TRANSITIONAL CELL CARCINOMA
     Route: 065
  7. DOCETAXEL. [Suspect]
     Active Substance: DOCETAXEL
     Indication: MALIGNANT URINARY TRACT NEOPLASM
  8. VINORELBINE [Suspect]
     Active Substance: VINORELBINE TARTRATE
     Indication: TRANSITIONAL CELL CARCINOMA
     Route: 065
  9. GEMCITABINE. [Suspect]
     Active Substance: GEMCITABINE
     Indication: RENAL CANCER
  10. CARBOPLATIN. [Suspect]
     Active Substance: CARBOPLATIN
     Indication: RENAL CANCER
  11. VINORELBINE [Suspect]
     Active Substance: VINORELBINE TARTRATE
     Indication: RENAL CANCER
  12. VALSARTAN. [Concomitant]
     Active Substance: VALSARTAN
     Indication: HYPERTENSION
     Route: 065
  13. CARBOPLATIN. [Suspect]
     Active Substance: CARBOPLATIN
     Indication: TRANSITIONAL CELL CARCINOMA
     Route: 065

REACTIONS (1)
  - Stress cardiomyopathy [Recovered/Resolved]
